FAERS Safety Report 6463560-5 (Version None)
Quarter: 2009Q4

REPORT INFORMATION
  Report Type: 
  Country: None (occurrence: None)
  Receive Date: 20091123
  Receipt Date: 20091118
  Transmission Date: 20100525
  Serious: Yes (Hospitalization)
  Sender: FDA-Public Use
  Company Number: 2009SP037112

PATIENT
  Age: 50 Year
  Sex: Male

DRUGS (3)
  1. VIRAFERONPEG [Suspect]
     Indication: HEPATITIS C POSITIVE
     Dosage: 1.5 MCG/KG;QW;SC
     Route: 058
     Dates: start: 20081115, end: 20090717
  2. COPEGUS [Suspect]
     Indication: HEPATITIS C POSITIVE
     Dosage: PO
     Route: 048
     Dates: start: 20081115, end: 20090717
  3. PROGRAF [Suspect]
     Indication: DRUG USE FOR UNKNOWN INDICATION
     Dosage: 8.5 MG;BID; PO
     Route: 048
     Dates: start: 20060101, end: 20090901

REACTIONS (8)
  - CARDIAC FAILURE [None]
  - CARDIOMYOPATHY [None]
  - DYSPNOEA [None]
  - FATIGUE [None]
  - GENERAL PHYSICAL HEALTH DETERIORATION [None]
  - HAEMODYNAMIC INSTABILITY [None]
  - PLEURAL EFFUSION [None]
  - TACHYCARDIA [None]
